FAERS Safety Report 8860193 (Version 2)
Quarter: 2012Q4

REPORT INFORMATION
  Report Type: 
  Country: CA (occurrence: CA)
  Receive Date: 20121025
  Receipt Date: 20121112
  Transmission Date: 20130627
  Serious: Yes (Hospitalization)
  Sender: FDA-Public Use
  Company Number: CA-ASTELLAS-2012US010283

PATIENT
  Sex: Male

DRUGS (1)
  1. PROGRAF [Suspect]
     Indication: LIVER TRANSPLANT
     Dosage: 1 mg, Unknown/D
     Route: 065
     Dates: start: 201002

REACTIONS (2)
  - Gastrointestinal obstruction [Unknown]
  - Cholangitis sclerosing [Unknown]
